FAERS Safety Report 18049863 (Version 1)
Quarter: 2020Q3

REPORT INFORMATION
  Report Type: Spontaneous
  Country: CA (occurrence: CA)
  Receive Date: 20200721
  Receipt Date: 20200721
  Transmission Date: 20201103
  Serious: Yes (Life-Threatening, Hospitalization)
  Sender: FDA-Public Use
  Company Number: CA-TEVA-2020-CA-1801589

PATIENT
  Age: 97 Year
  Sex: Female
  Weight: 63 kg

DRUGS (12)
  1. ACETAMINOPHEN. [Concomitant]
     Active Substance: ACETAMINOPHEN
  2. FERROUS SULFATE. [Concomitant]
     Active Substance: FERROUS SULFATE
  3. FENTANYL. [Concomitant]
     Active Substance: FENTANYL
  4. LEVOTHYROXINE. [Concomitant]
     Active Substance: LEVOTHYROXINE
  5. SENNOSIDES. [Concomitant]
     Active Substance: SENNOSIDES
  6. VITAMIN C [Concomitant]
     Active Substance: ASCORBIC ACID
  7. TEVA?TAMOXIFEN [Suspect]
     Active Substance: TAMOXIFEN
     Indication: BREAST CANCER
     Dosage: 20 MILLIGRAM DAILY;
     Route: 048
  8. OLANZAPINE. [Concomitant]
     Active Substance: OLANZAPINE
  9. VITAMIN D [Concomitant]
     Active Substance: VITAMIN D NOS
  10. CALCIUM [Concomitant]
     Active Substance: CALCIUM
  11. DOCUSATE [Concomitant]
     Active Substance: DOCUSATE
  12. IRBESARTAN. [Concomitant]
     Active Substance: IRBESARTAN

REACTIONS (4)
  - Oedema [Unknown]
  - Gait disturbance [Unknown]
  - Phlebitis [Unknown]
  - Ecchymosis [Unknown]
